FAERS Safety Report 10708051 (Version 1)
Quarter: 2015Q1

REPORT INFORMATION
  Report Type: Spontaneous
  Country: US (occurrence: US)
  Receive Date: 20150113
  Receipt Date: 20150113
  Transmission Date: 20150721
  Serious: No
  Sender: FDA-Public Use
  Company Number: US-PFIZER INC-2015006641

PATIENT
  Age: 58 Year
  Sex: Female
  Weight: 77 kg

DRUGS (1)
  1. GABAPENTIN. [Suspect]
     Active Substance: GABAPENTIN
     Indication: PAIN IN EXTREMITY
     Dosage: 2000 MG, UNK

REACTIONS (2)
  - Hypoaesthesia [Unknown]
  - Drug ineffective for unapproved indication [Unknown]
